FAERS Safety Report 10665822 (Version 2)
Quarter: 2015Q4

REPORT INFORMATION
  Report Type: Spontaneous
  Country: US (occurrence: US)
  Receive Date: 20141219
  Receipt Date: 20151204
  Transmission Date: 20160304
  Serious: No
  Sender: FDA-Public Use
  Company Number: US-BAUSCH-BL-2014-006026

PATIENT
  Age: 60 Year
  Sex: Male

DRUGS (2)
  1. XENAZINE [Suspect]
     Active Substance: TETRABENAZINE
     Route: 048
     Dates: start: 20140909
  2. XENAZINE [Suspect]
     Active Substance: TETRABENAZINE
     Indication: CHOREA
     Dosage: 12.5MG TABLETS, THREE TABLETS IN THE MORNING, TWO AT NOON AND TWO AT NIGHT
     Route: 048
     Dates: start: 201409

REACTIONS (4)
  - Off label use [Not Recovered/Not Resolved]
  - Erythema [Unknown]
  - Drug ineffective for unapproved indication [Not Recovered/Not Resolved]
  - Pruritus [Unknown]

NARRATIVE: CASE EVENT DATE: 2014
